FAERS Safety Report 4504302-X (Version None)
Quarter: 2004Q4

REPORT INFORMATION
  Report Type: 
  Country: None (occurrence: None)
  Receive Date: 20041116
  Receipt Date: 20041116
  Transmission Date: 20050328
  Serious: Yes (Life-Threatening)
  Sender: FDA-Public Use
  Company Number: None

PATIENT
  Sex: Male
  Weight: 7.1 kg

DRUGS (10)
  1. INTRALIPID 10% [Suspect]
     Indication: CONGENITAL MEGACOLON
     Dosage: 60 ML IN TPN DAILY
     Dates: start: 20040615, end: 20040915
  2. INTRALIPID 10% [Suspect]
     Indication: INTESTINAL HYPOMOTILITY
     Dosage: 60 ML IN TPN DAILY
     Dates: start: 20040615, end: 20040915
  3. INTRALIPID 10% [Suspect]
  4. INTRALIPID 10% [Suspect]
  5. INTRALIPID 10% [Suspect]
  6. INTRALIPID 10% [Suspect]
  7. INTRALIPID 10% [Suspect]
  8. DEXTROSE [Concomitant]
  9. TROPHAMINE [Concomitant]
  10. CYSTEINE [Concomitant]

REACTIONS (2)
  - ANAEMIA [None]
  - BACTERIAL INFECTION [None]
